FAERS Safety Report 9768937 (Version 3)
Quarter: 2014Q2

REPORT INFORMATION
  Report Type: Spontaneous
  Country: ES (occurrence: None)
  Receive Date: 20131216
  Receipt Date: 20140530
  Transmission Date: 20141212
  Serious: Yes (Hospitalization)
  Sender: FDA-Public Use
  Company Number: 201312026

PATIENT
  Age: 70 Year
  Sex: Male

DRUGS (2)
  1. XIAPEX [Suspect]
     Indication: DUPUYTREN^S CONTRACTURE
     Dosage: INTRALESIONAL
     Dates: start: 201212, end: 201212
  2. ANTIHYPERTENSIVES [Concomitant]

REACTIONS (4)
  - Encephalomyelitis [None]
  - Vasculitis cerebral [None]
  - Mycobacterium test positive [None]
  - Hepatitis A antibody positive [None]
